FAERS Safety Report 6083671-6 (Version None)
Quarter: 2009Q1

REPORT INFORMATION
  Report Type: 
  Country: None (occurrence: None)
  Receive Date: 20090219
  Receipt Date: 20090210
  Transmission Date: 20090719
  Serious: Yes (Hospitalization)
  Sender: FDA-Public Use
  Company Number: FI-AMGEN-UK319332

PATIENT
  Sex: Male

DRUGS (3)
  1. PANITUMUMAB [Suspect]
     Indication: SQUAMOUS CELL CARCINOMA
     Route: 042
     Dates: start: 20081022
  2. PANITUMUMAB - STUDY PROCEDURE [Suspect]
     Indication: SQUAMOUS CELL CARCINOMA
  3. CISPLATIN [Concomitant]

REACTIONS (2)
  - DYSPHAGIA [None]
  - NAUSEA [None]
